FAERS Safety Report 25795044 (Version 2)
Quarter: 2025Q4

REPORT INFORMATION
  Report Type: Spontaneous
  Country: EU (occurrence: EU)
  Receive Date: 20250912
  Receipt Date: 20251111
  Transmission Date: 20260118
  Serious: Yes (Other)
  Sender: ROCHE
  Company Number: EU-002147023-NVSC2025PL140164

PATIENT
  Sex: Female

DRUGS (1)
  1. XOLAIR [Suspect]
     Active Substance: OMALIZUMAB
     Indication: Product used for unknown indication
     Dosage: UNK
     Route: 065

REACTIONS (6)
  - Petit mal epilepsy [Unknown]
  - Nystagmus [Unknown]
  - Trismus [Unknown]
  - Asthenia [Unknown]
  - Somnolence [Unknown]
  - Headache [Unknown]
